FAERS Safety Report 5093160-3 (Version None)
Quarter: 2006Q3

REPORT INFORMATION
  Report Type: 
  Country: None (occurrence: None)
  Receive Date: 20060828
  Receipt Date: 20060816
  Transmission Date: 20061208
  Serious: Yes (Hospitalization)
  Sender: FDA-Public Use
  Company Number: GXKR2006GB05031

PATIENT
  Sex: Female
  Weight: 3.1 kg

DRUGS (1)
  1. FLUOXETINE [Suspect]
     Dosage: 20 MG, TRANSPLACENTAL
     Route: 064

REACTIONS (5)
  - DRUG EXPOSURE DURING PREGNANCY [None]
  - HYPOGLYCAEMIA NEONATAL [None]
  - RASH NEONATAL [None]
  - RASH PUSTULAR [None]
  - TRANSIENT TACHYPNOEA OF THE NEWBORN [None]
